FAERS Safety Report 22340718 (Version 1)
Quarter: 2023Q2

REPORT INFORMATION
  Report Type: Spontaneous
  Country: GB (occurrence: GB)
  Receive Date: 20230518
  Receipt Date: 20230518
  Transmission Date: 20230721
  Serious: Yes (Disabling, Other)
  Sender: FDA-Public Use
  Company Number: GB-MHRA-MED-202305140048062670-GTWMY

PATIENT
  Age: 57 Year
  Sex: Male
  Weight: 89 kg

DRUGS (1)
  1. LEVOFLOXACIN [Suspect]
     Active Substance: LEVOFLOXACIN
     Indication: Prostatitis
     Dosage: 500 MILLIGRAM (500MG;)
     Route: 065
     Dates: start: 20230411, end: 20230511

REACTIONS (2)
  - Limb discomfort [Not Recovered/Not Resolved]
  - Back pain [Not Recovered/Not Resolved]

NARRATIVE: CASE EVENT DATE: 20230421
